FAERS Safety Report 25086604 (Version 2)
Quarter: 2025Q1

REPORT INFORMATION
  Report Type: Spontaneous
  Country: US (occurrence: US)
  Receive Date: 20250317
  Receipt Date: 20250326
  Transmission Date: 20250409
  Serious: Yes (Hospitalization, Other)
  Sender: BRISTOL-MYERS SQUIBB COMPANY
  Company Number: US-BRISTOL-MYERS SQUIBB COMPANY-2025-039561

PATIENT
  Age: 60 Year
  Sex: Male

DRUGS (2)
  1. ELIQUIS [Suspect]
     Active Substance: APIXABAN
     Indication: Intracranial aneurysm
     Route: 048
     Dates: end: 20250314
  2. ELIQUIS [Suspect]
     Active Substance: APIXABAN
     Indication: Vascular graft

REACTIONS (4)
  - Localised infection [Recovered/Resolved]
  - Osteomyelitis [Unknown]
  - Off label use [Unknown]
  - Abscess [Unknown]

NARRATIVE: CASE EVENT DATE: 20250314
